FAERS Safety Report 6423864-9 (Version None)
Quarter: 2009Q4

REPORT INFORMATION
  Report Type: 
  Country: None (occurrence: None)
  Receive Date: 20091102
  Receipt Date: 20091021
  Transmission Date: 20100525
  Serious: Yes (Other)
  Sender: FDA-Public Use
  Company Number: GB-GILEAD-2007-0011320

PATIENT
  Age: 42 Year
  Sex: Male
  Weight: 93 kg

DRUGS (4)
  1. TRUVADA [Suspect]
     Indication: HIV INFECTION
     Dates: start: 20061101
  2. SUSTIVA [Suspect]
     Indication: HIV INFECTION
     Route: 048
     Dates: start: 20061101, end: 20070101
  3. KIVEXA [Concomitant]
     Dates: start: 20061101
  4. KALETRA [Concomitant]
     Dates: start: 20070101

REACTIONS (4)
  - ABNORMAL DREAMS [None]
  - AGGRESSION [None]
  - ANTISOCIAL BEHAVIOUR [None]
  - SUICIDAL IDEATION [None]
